FAERS Safety Report 7875859-6 (Version None)
Quarter: 2011Q4

REPORT INFORMATION
  Report Type: 
  Country: None (occurrence: None)
  Receive Date: 20111031
  Receipt Date: 20111026
  Transmission Date: 20120403
  Serious: Yes (Life-Threatening, Other)
  Sender: FDA-Public Use
  Company Number: PHHY2011FR94688

PATIENT
  Sex: Female

DRUGS (6)
  1. PERINDOPRIL ERBUMINE [Interacting]
     Dosage: 1 DF, QD
     Dates: start: 20110704, end: 20110708
  2. LASIX [Interacting]
     Dosage: 1 DF, QD (FUROS 20 MG/ 2 ML)
     Dates: end: 20110708
  3. PREVISCAN [Concomitant]
  4. VALSARTAN [Suspect]
     Dosage: 1 DF, QD
     Dates: end: 20110708
  5. BETA BLOCKING AGENTS [Concomitant]
  6. CIPROFLOXACIN [Concomitant]

REACTIONS (7)
  - BLOOD CREATININE INCREASED [None]
  - ACUTE CORONARY SYNDROME [None]
  - DRUG INTERACTION [None]
  - BRADYCARDIA [None]
  - RENAL FAILURE CHRONIC [None]
  - RENAL CYST [None]
  - HYPERKALAEMIA [None]
